FAERS Safety Report 9372440 (Version 1)
Quarter: 2013Q2

REPORT INFORMATION
  Report Type: Spontaneous
  Country: TR (occurrence: None)
  Receive Date: 20130625
  Receipt Date: 20130625
  Transmission Date: 20140414
  Serious: Yes (Other)
  Sender: FDA-Public Use
  Company Number: 2013AP006179

PATIENT
  Age: 36 Year
  Sex: Male

DRUGS (2)
  1. RISPERIDONE [Suspect]
     Indication: SCHIZOAFFECTIVE DISORDER
  2. BUPROPION [Suspect]
     Indication: SMOKING CESSATION THERAPY

REACTIONS (7)
  - Extrapyramidal disorder [None]
  - Condition aggravated [None]
  - Insomnia [None]
  - Elevated mood [None]
  - Hallucinations, mixed [None]
  - Logorrhoea [None]
  - Delusion [None]
